FAERS Safety Report 10486264 (Version 4)
Quarter: 2015Q1

REPORT INFORMATION
  Report Type: Report from Study
  Country: BE (occurrence: BE)
  Receive Date: 20141001
  Receipt Date: 20150115
  Transmission Date: 20150720
  Serious: Yes (Death, Life-Threatening)
  Sender: FDA-Public Use
  Company Number: BE-CELGENE-013-C5013-12121333

PATIENT
  Age: 71 Year
  Sex: Male

DRUGS (13)
  1. MELPHALAN [Suspect]
     Active Substance: MELPHALAN
     Indication: PLASMA CELL MYELOMA
     Route: 065
     Dates: start: 20100420, end: 20110812
  2. PANTOMED [Concomitant]
     Active Substance: DEXPANTHENOL
     Indication: PROPHYLAXIS
     Route: 048
     Dates: start: 20130722
  3. THALIDOMIDE [Suspect]
     Active Substance: THALIDOMIDE
     Indication: PLASMA CELL MYELOMA
     Route: 048
     Dates: start: 20100420
  4. SIMVASTATINE [Concomitant]
     Active Substance: SIMVASTATIN
     Indication: HYPERCHOLESTEROLAEMIA
     Dosage: 500 MILLIGRAM
     Route: 048
     Dates: start: 19410905
  5. URICRAN [Concomitant]
     Indication: BENIGN PROSTATIC HYPERPLASIA
     Route: 048
     Dates: start: 20100420
  6. CARDIOASPIRINE [Concomitant]
     Active Substance: ASPIRIN
     Indication: THROMBOSIS PROPHYLAXIS
     Dosage: .4 MILLIGRAM
     Route: 048
     Dates: start: 20111213
  7. PREDNISONE. [Suspect]
     Active Substance: PREDNISONE
     Indication: PLASMA CELL MYELOMA
     Route: 065
     Dates: start: 20100420, end: 20110812
  8. D-CURE [Concomitant]
     Indication: VITAMIN D DEFICIENCY
     Dosage: 144 MILLIGRAM
     Route: 048
  9. FRAXIPARIN [Concomitant]
     Active Substance: NADROPARIN CALCIUM
     Indication: THROMBOSIS PROPHYLAXIS
     Route: 065
     Dates: start: 20100612
  10. THALIDOMIDE [Suspect]
     Active Substance: THALIDOMIDE
     Dosage: 100 MILLIGRAM
     Route: 048
     Dates: end: 20110919
  11. TAMSULOSINE [Concomitant]
     Active Substance: TAMSULOSIN HYDROCHLORIDE
     Indication: BENIGN PROSTATIC HYPERPLASIA
     Dosage: 20 MILLIGRAM
     Route: 048
     Dates: start: 2000
  12. MELPHALAN [Suspect]
     Active Substance: MELPHALAN
     Route: 065
     Dates: end: 201109
  13. PREDNISONE. [Suspect]
     Active Substance: PREDNISONE
     Dosage: 20 MILLIGRAM
     Route: 065
     Dates: end: 201109

REACTIONS (1)
  - Acute myeloid leukaemia [Fatal]

NARRATIVE: CASE EVENT DATE: 20121016
